FAERS Safety Report 16983182 (Version 1)
Quarter: 2019Q4

REPORT INFORMATION
  Report Type: Spontaneous
  Country: GB (occurrence: GB)
  Receive Date: 20191101
  Receipt Date: 20191101
  Transmission Date: 20200122
  Serious: Yes (Other)
  Sender: FDA-Public Use
  Company Number: GB-MYLANLABS-2019M1103523

PATIENT
  Age: 19 Year
  Sex: Female
  Weight: 73.02 kg

DRUGS (2)
  1. TRAMADOL. [Suspect]
     Active Substance: TRAMADOL
     Indication: COSTOCHONDRITIS
     Dosage: 100 MILLIGRAM, PRN
     Route: 048
     Dates: start: 201703
  2. PRAMIPEXOLE. [Concomitant]
     Active Substance: PRAMIPEXOLE
     Dosage: UNK

REACTIONS (1)
  - Tongue biting [Not Recovered/Not Resolved]
